FAERS Safety Report 7762923-5 (Version None)
Quarter: 2011Q3

REPORT INFORMATION
  Report Type: 
  Country: None (occurrence: None)
  Receive Date: 20110920
  Receipt Date: 20110915
  Transmission Date: 20111222
  Serious: Yes (Other)
  Sender: FDA-Public Use
  Company Number: GXKR2011DE02796

PATIENT
  Age: 57 Year
  Sex: Female

DRUGS (2)
  1. METRONIDAZOLE [Suspect]
     Indication: PERIODONTITIS
     Dosage: 400 MG, TID
     Route: 048
  2. AMOXICILLIN [Suspect]
     Indication: PERIODONTITIS
     Dosage: 1500 MG, Q48H
     Route: 048

REACTIONS (2)
  - ABDOMINAL DISCOMFORT [None]
  - INTESTINAL HAEMORRHAGE [None]
